FAERS Safety Report 25760574 (Version 1)
Quarter: 2025Q3

REPORT INFORMATION
  Report Type: Spontaneous
  Country: US (occurrence: US)
  Receive Date: 20250904
  Receipt Date: 20250904
  Transmission Date: 20251020
  Serious: No
  Sender: SANOFI AVENTIS
  Company Number: US-SA-2025SA264420

PATIENT
  Sex: Female
  Weight: 57.73 kg

DRUGS (4)
  1. DUPIXENT [Suspect]
     Active Substance: DUPILUMAB
     Dosage: 300 MG, QOW
     Route: 058
  2. SINEMET [Concomitant]
     Active Substance: CARBIDOPA\LEVODOPA
  3. METHOTREXATE [Concomitant]
     Active Substance: METHOTREXATE
  4. HUMIRA [Concomitant]
     Active Substance: ADALIMUMAB

REACTIONS (4)
  - Fluid retention [Recovered/Resolved]
  - Weight decreased [Unknown]
  - Dysphagia [Recovering/Resolving]
  - Therapeutic response unexpected [Unknown]
